FAERS Safety Report 18261746 (Version 1)
Quarter: 2020Q3

REPORT INFORMATION
  Report Type: Spontaneous
  Country: US (occurrence: US)
  Receive Date: 20200914
  Receipt Date: 20200914
  Transmission Date: 20201103
  Serious: No
  Sender: FDA-Public Use
  Company Number: US-LUPIN PHARMACEUTICALS INC.-2020-03789

PATIENT
  Age: 92 Year
  Sex: Male

DRUGS (18)
  1. MIRTAZAPINE. [Suspect]
     Active Substance: MIRTAZAPINE
     Indication: PRODUCT USED FOR UNKNOWN INDICATION
     Dosage: UNK
     Route: 065
  2. FEXOFENADINE [Suspect]
     Active Substance: FEXOFENADINE HYDROCHLORIDE
     Indication: PRODUCT USED FOR UNKNOWN INDICATION
     Dosage: UNK
     Route: 065
  3. DOXEPIN [Suspect]
     Active Substance: DOXEPIN
     Indication: EVIDENCE BASED TREATMENT
     Dosage: UNK
     Route: 065
  4. PERMETHRIN. [Suspect]
     Active Substance: PERMETHRIN
     Indication: PRURITUS
  5. GABAPENTIN. [Suspect]
     Active Substance: GABAPENTIN
     Indication: PRODUCT USED FOR UNKNOWN INDICATION
     Dosage: UNK
     Route: 065
  6. TRIAMCINOLONE ACETONIDE. [Suspect]
     Active Substance: TRIAMCINOLONE ACETONIDE
     Indication: PRODUCT USED FOR UNKNOWN INDICATION
     Dosage: 60 MILLIGRAM (SIX)
     Route: 030
  7. DOXEPIN [Suspect]
     Active Substance: DOXEPIN
     Indication: PRURITUS
  8. HYDROXYZINE [Suspect]
     Active Substance: HYDROXYZINE HYDROCHLORIDE
     Indication: PRURITUS
  9. NIVOLUMAB [Concomitant]
     Active Substance: NIVOLUMAB
     Indication: HODGKIN^S DISEASE
     Dosage: 240 MILLIGRAM (MONTHLY)
     Route: 065
  10. PREDNISONE. [Suspect]
     Active Substance: PREDNISONE
     Indication: PRURITUS
     Dosage: UNK, TAPERS
     Route: 048
  11. METHOTREXATE. [Suspect]
     Active Substance: METHOTREXATE
     Indication: PRURITUS
     Dosage: 15 MILLIGRAM (WEEKLY)
     Route: 065
  12. NALTREXONE [Concomitant]
     Active Substance: NALTREXONE
     Indication: PRODUCT USED FOR UNKNOWN INDICATION
     Dosage: UNK
     Route: 065
  13. HYDROXYZINE [Suspect]
     Active Substance: HYDROXYZINE HYDROCHLORIDE
     Indication: EVIDENCE BASED TREATMENT
     Dosage: UNK
     Route: 065
  14. IVERMECTIN. [Suspect]
     Active Substance: IVERMECTIN
     Indication: PRURITUS
     Dosage: UNK
     Route: 065
  15. PERMETHRIN. [Suspect]
     Active Substance: PERMETHRIN
     Indication: EVIDENCE BASED TREATMENT
     Dosage: UNK
     Route: 065
  16. CETIRIZINE [Suspect]
     Active Substance: CETIRIZINE HYDROCHLORIDE
     Indication: PRODUCT USED FOR UNKNOWN INDICATION
     Dosage: UNK
     Route: 065
  17. DIPHENHYDRAMINE. [Suspect]
     Active Substance: DIPHENHYDRAMINE
     Indication: PRODUCT USED FOR UNKNOWN INDICATION
     Dosage: UNK
     Route: 065
  18. IVERMECTIN. [Suspect]
     Active Substance: IVERMECTIN
     Indication: EVIDENCE BASED TREATMENT

REACTIONS (1)
  - Drug ineffective [Unknown]
